FAERS Safety Report 4666358-3 (Version None)
Quarter: 2005Q2

REPORT INFORMATION
  Report Type: 
  Country: None (occurrence: None)
  Receive Date: 20050512
  Receipt Date: 20050426
  Transmission Date: 20051028
  Serious: Yes (Hospitalization)
  Sender: FDA-Public Use
  Company Number: MPS1-10366

PATIENT
  Sex: Male
  Weight: 35 kg

DRUGS (4)
  1. ALDURAZYME [Suspect]
     Indication: MUCOPOLYSACCHARIDOSIS I
     Dosage: 0.58 MG/KG QWK IV
     Route: 042
     Dates: start: 20040101
  2. SALBUTAMOL [Concomitant]
  3. BUDESONIDE [Concomitant]
  4. IBUPROFEN [Concomitant]

REACTIONS (6)
  - ARTHRALGIA [None]
  - CARDIO-RESPIRATORY DISTRESS [None]
  - DYSPNOEA [None]
  - HYPOXIA [None]
  - KNEE DEFORMITY [None]
  - WHEEZING [None]
